FAERS Safety Report 10430078 (Version 1)
Quarter: 2014Q3

REPORT INFORMATION
  Report Type: Report from Study
  Country: BR (occurrence: BR)
  Receive Date: 20140904
  Receipt Date: 20140904
  Transmission Date: 20150326
  Serious: Yes (Hospitalization)
  Sender: FDA-Public Use
  Company Number: BR-US-EMD SERONO, INC.-7317529

PATIENT
  Age: 43 Year
  Sex: Female

DRUGS (1)
  1. REBIF [Suspect]
     Active Substance: INTERFERON BETA-1A
     Indication: PSORIATIC ARTHROPATHY
     Dates: start: 20031211

REACTIONS (3)
  - Renal cyst [Unknown]
  - Off label use [Unknown]
  - Spinal pain [Unknown]

NARRATIVE: CASE EVENT DATE: 20031211
